FAERS Safety Report 5839759-5 (Version None)
Quarter: 2008Q3

REPORT INFORMATION
  Report Type: 
  Country: None (occurrence: None)
  Receive Date: 20080811
  Receipt Date: 20080805
  Transmission Date: 20090109
  Serious: Yes (Death)
  Sender: FDA-Public Use
  Company Number: JP-BRISTOL-MYERS SQUIBB COMPANY-14294235

PATIENT
  Age: 68 Year
  Sex: Female

DRUGS (2)
  1. PARAPLATIN [Suspect]
     Indication: LUNG NEOPLASM MALIGNANT
     Route: 041
     Dates: start: 20080326, end: 20080326
  2. LASTET [Suspect]
     Indication: LUNG NEOPLASM MALIGNANT
     Dosage: INITIATED ON 26MAR08,THERAPY DATE- 26MAR08-28MAR08, DURATION- 3 DAYS
     Route: 041
     Dates: start: 20080326, end: 20080328

REACTIONS (1)
  - INTERSTITIAL LUNG DISEASE [None]
